FAERS Safety Report 8962442 (Version 1)
Quarter: 2012Q4

REPORT INFORMATION
  Report Type: Spontaneous
  Country: US (occurrence: None)
  Receive Date: 20121205
  Receipt Date: 20121205
  Transmission Date: 20130627
  Serious: Yes (Hospitalization, Other)
  Sender: FDA-Public Use
  Company Number: DAV-AE-NAP-12-02

PATIENT
  Age: 64 Year
  Sex: Female

DRUGS (1)
  1. NAPROXEN [Suspect]
     Indication: JOINT PAIN

REACTIONS (12)
  - Urine output decreased [None]
  - Dysuria [None]
  - Vomiting [None]
  - Nausea [None]
  - Back pain [None]
  - Urinary tract infection [None]
  - Renal failure acute [None]
  - Glycosuria [None]
  - Haematuria [None]
  - Pyuria [None]
  - Proteinuria [None]
  - Nephritis [None]
